FAERS Safety Report 24982083 (Version 4)
Quarter: 2025Q3

REPORT INFORMATION
  Report Type: Spontaneous
  Country: US (occurrence: US)
  Receive Date: 20250218
  Receipt Date: 20250715
  Transmission Date: 20251021
  Serious: No
  Sender: NOVARTIS
  Company Number: US-002147023-NVSC2025US026951

PATIENT
  Age: 43 Year
  Sex: Female

DRUGS (1)
  1. ILARIS [Suspect]
     Active Substance: CANAKINUMAB
     Indication: Product used for unknown indication
     Dosage: 150 MG, 28D (ROUTE: INJECTION)
     Route: 065

REACTIONS (2)
  - Product leakage [Unknown]
  - Accidental exposure to product [Unknown]

NARRATIVE: CASE EVENT DATE: 20250214
